FAERS Safety Report 21089511 (Version 1)
Quarter: 2022Q3

REPORT INFORMATION
  Report Type: Spontaneous
  Country: FR (occurrence: FR)
  Receive Date: 20220715
  Receipt Date: 20220715
  Transmission Date: 20221027
  Serious: Yes (Hospitalization, Other)
  Sender: FDA-Public Use
  Company Number: None

PATIENT
  Age: 20 Year
  Sex: Female
  Weight: 150 kg

DRUGS (4)
  1. CLOBAZAM [Suspect]
     Active Substance: CLOBAZAM
     Indication: Suicide attempt
     Dosage: 200 MG, 1X,20 TABLETS AT 10MG; 4X
     Route: 048
     Dates: start: 20220610, end: 20220610
  2. ACETAMINOPHEN [Suspect]
     Active Substance: ACETAMINOPHEN
     Indication: Suicide attempt
     Dosage: 24 DF, 1X,24 DF; 4X
     Route: 048
     Dates: start: 20220610, end: 20220610
  3. PROZAC [Suspect]
     Active Substance: FLUOXETINE HYDROCHLORIDE
     Indication: Suicide attempt
     Dosage: 140 MG, 1X,7 TABLETS AT 20MG
     Route: 048
     Dates: start: 20220610, end: 20220610
  4. NEFOPAM HYDROCHLORIDE [Suspect]
     Active Substance: NEFOPAM HYDROCHLORIDE
     Indication: Suicide attempt
     Dosage: 1 DF, 1X,1DF; 4X
     Route: 048
     Dates: start: 20220610, end: 20220610

REACTIONS (4)
  - Toxicity to various agents [Recovered/Resolved]
  - Electrocardiogram QT prolonged [Recovered/Resolved]
  - Abdominal pain [Recovered/Resolved]
  - Tachycardia [Recovered/Resolved]
